FAERS Safety Report 24707785 (Version 1)
Quarter: 2024Q4

REPORT INFORMATION
  Report Type: Report from Study
  Country: US (occurrence: US)
  Receive Date: 20241206
  Receipt Date: 20241206
  Transmission Date: 20250114
  Serious: Yes (Other)
  Sender: JAZZ
  Company Number: US-JAZZ PHARMACEUTICALS-2024-US-022441

PATIENT
  Sex: Female
  Weight: 76 kg

DRUGS (34)
  1. XYWAV [Suspect]
     Active Substance: CALCIUM OXYBATE\MAGNESIUM OXYBATE\POTASSIUM OXYBATE\SODIUM OXYBATE
     Indication: Narcolepsy
     Dosage: UNK
  2. XYWAV [Suspect]
     Active Substance: CALCIUM OXYBATE\MAGNESIUM OXYBATE\POTASSIUM OXYBATE\SODIUM OXYBATE
     Indication: Cataplexy
     Dosage: 6 GRAM FIRST DOSE AND 3 GRAM 2.5-4 HOURS LATER
  3. XYWAV [Suspect]
     Active Substance: CALCIUM OXYBATE\MAGNESIUM OXYBATE\POTASSIUM OXYBATE\SODIUM OXYBATE
     Indication: Somnolence
  4. ARMODAFINIL [Concomitant]
     Active Substance: ARMODAFINIL
     Dosage: UNK
     Dates: start: 20200101
  5. PROPRANOLOL [Concomitant]
     Active Substance: PROPRANOLOL HYDROCHLORIDE
     Dosage: UNK
     Dates: start: 20221101
  6. VYVANSE [Concomitant]
     Active Substance: LISDEXAMFETAMINE DIMESYLATE
     Dosage: UNK
     Dates: start: 20221101
  7. AIMOVIG [Concomitant]
     Active Substance: ERENUMAB\ERENUMAB-AOOE
  8. WELLBUTRIN [Concomitant]
     Active Substance: BUPROPION HYDROCHLORIDE
  9. CHOLECALCIFEROL [Concomitant]
     Active Substance: CHOLECALCIFEROL
  10. GASTROCROM [Concomitant]
     Active Substance: CROMOLYN SODIUM
  11. EPIPEN [Concomitant]
     Active Substance: EPINEPHRINE
  12. GABAPENTIN [Concomitant]
     Active Substance: GABAPENTIN
     Dosage: UNK
  13. HYDROXYCHLOROQUINE DIPHOSPHATE [Concomitant]
     Active Substance: HYDROXYCHLOROQUINE DIPHOSPHATE
     Dosage: UNK
  14. IMMUNE GLOBULIN [Concomitant]
  15. VIMPAT [Concomitant]
     Active Substance: LACOSAMIDE
     Dosage: UNK
  16. VIMPAT [Concomitant]
     Active Substance: LACOSAMIDE
     Dosage: UNK
  17. LEVOCETIRIZINE DIHYDROCHLORIDE [Concomitant]
     Active Substance: LEVOCETIRIZINE DIHYDROCHLORIDE
  18. SYNTHROID [Concomitant]
     Active Substance: LEVOTHYROXINE SODIUM
  19. LISDEXAMFETAMINE [Concomitant]
     Active Substance: LISDEXAMFETAMINE
     Dosage: UNK
  20. MAGNESIUM OXIDE [Concomitant]
     Active Substance: MAGNESIUM OXIDE
  21. METFORMIN [Concomitant]
     Active Substance: METFORMIN HYDROCHLORIDE
     Dosage: UNK
  22. SINGULAIR [Concomitant]
     Active Substance: MONTELUKAST SODIUM
  23. NALOXONE [Concomitant]
     Active Substance: NALOXONE
  24. NITROSTAT [Concomitant]
     Active Substance: NITROGLYCERIN
  25. PRILOSEC [Concomitant]
     Active Substance: OMEPRAZOLE MAGNESIUM
  26. ONDANSETRON [Concomitant]
     Active Substance: ONDANSETRON
     Dosage: UNK
  27. PERCOCET [Concomitant]
     Active Substance: ACETAMINOPHEN\OXYCODONE HYDROCHLORIDE
     Dosage: UNK
  28. PITOLISANT HYDROCHLORIDE [Concomitant]
     Active Substance: PITOLISANT HYDROCHLORIDE
  29. MINIPRESS [Concomitant]
     Active Substance: PRAZOSIN HYDROCHLORIDE
  30. NURTEC ODT [Concomitant]
     Active Substance: RIMEGEPANT SULFATE
  31. ZOLOFT [Concomitant]
     Active Substance: SERTRALINE HYDROCHLORIDE
  32. ZANAFLEX [Concomitant]
     Active Substance: TIZANIDINE HYDROCHLORIDE
  33. DESYREL [Concomitant]
     Active Substance: TRAZODONE HYDROCHLORIDE
  34. VRAYLAR [Concomitant]
     Active Substance: CARIPRAZINE

REACTIONS (5)
  - Neuropathy peripheral [Unknown]
  - Somnolence [Unknown]
  - Food craving [Unknown]
  - Weight increased [Unknown]
  - Product administration interrupted [Unknown]
